FAERS Safety Report 7506289-4 (Version None)
Quarter: 2011Q2

REPORT INFORMATION
  Report Type: 
  Country: None (occurrence: None)
  Receive Date: 20110526
  Receipt Date: 20110519
  Transmission Date: 20111010
  Serious: Yes (Hospitalization, Other)
  Sender: FDA-Public Use
  Company Number: MX-SANOFI-AVENTIS-2011SA031603

PATIENT
  Age: 75 Year
  Sex: Male

DRUGS (2)
  1. LANTUS [Suspect]
     Indication: DIABETES MELLITUS
     Route: 058
     Dates: start: 20110201
  2. CAPTOPRIL [Concomitant]
     Route: 048
     Dates: start: 20110201

REACTIONS (3)
  - HIP FRACTURE [None]
  - FALL [None]
  - HYPERGLYCAEMIA [None]
